FAERS Safety Report 5674895-8 (Version None)
Quarter: 2008Q2

REPORT INFORMATION
  Report Type: 
  Country: None (occurrence: None)
  Receive Date: 20080305
  Receipt Date: 20070410
  Transmission Date: 20081010
  Serious: Yes (Life-Threatening, Hospitalization)
  Sender: FDA-Public Use
  Company Number: BDI-009300

PATIENT
  Age: 37 Year
  Sex: Female
  Weight: 106 kg

DRUGS (8)
  1. ISOVUE-300 [Suspect]
     Indication: ARTERIOVENOUS FISTULA THROMBOSIS
     Dosage: 612MG ONCE INTRAVENOUS
     Route: 042
     Dates: start: 20070321, end: 20070321
  2. ISOVUE-300 [Suspect]
     Indication: DIAGNOSTIC PROCEDURE
     Dosage: 612MG ONCE INTRAVENOUS
     Route: 042
     Dates: start: 20070321, end: 20070321
  3. INSULIN [Concomitant]
  4. SODIUM BICARBONATE [Concomitant]
  5. ENTERIC COATED [Concomitant]
  6. TOPROL-XL [Concomitant]
  7. AVAPRO [Concomitant]
  8. CALCITRIOL [Concomitant]

REACTIONS (4)
  - CARDIO-RESPIRATORY ARREST [None]
  - DIZZINESS [None]
  - FEELING HOT [None]
  - PULSE ABSENT [None]
